FAERS Safety Report 26088887 (Version 2)
Quarter: 2025Q4

REPORT INFORMATION
  Report Type: Report from Study
  Country: US (occurrence: US)
  Receive Date: 20251125
  Receipt Date: 20251216
  Transmission Date: 20260117
  Serious: Yes (Hospitalization, Other)
  Sender: ABBVIE
  Company Number: US-ABBVIE-6562611

PATIENT
  Age: 47 Year
  Sex: Female
  Weight: 81.64 kg

DRUGS (4)
  1. UBRELVY [Suspect]
     Active Substance: UBROGEPANT
     Indication: Migraine
     Dosage: FREQUENCY TEXT: EVERY 1 OR 2 DAYS
     Route: 048
     Dates: end: 202505
  2. UBRELVY [Suspect]
     Active Substance: UBROGEPANT
     Indication: Migraine
     Dosage: FREQUENCY TEXT: EVERY 1 OR 2 DAYS
     Route: 048
     Dates: start: 202506
  3. FIORICET [Concomitant]
     Active Substance: ACETAMINOPHEN\BUTALBITAL\CAFFEINE
     Indication: Headache
     Dates: start: 20250503
  4. TOPAMAX [Concomitant]
     Active Substance: TOPIRAMATE
     Indication: Headache
     Dates: start: 202511

REACTIONS (7)
  - Subdural haematoma [Recovered/Resolved]
  - Cerebral haemorrhage [Not Recovered/Not Resolved]
  - Feeling abnormal [Unknown]
  - Amnesia [Unknown]
  - Migraine [Not Recovered/Not Resolved]
  - Injury [Unknown]
  - Anxiety [Not Recovered/Not Resolved]

NARRATIVE: CASE EVENT DATE: 20250501
